FAERS Safety Report 5777577-7 (Version None)
Quarter: 2008Q2

REPORT INFORMATION
  Report Type: 
  Country: None (occurrence: None)
  Receive Date: 20080618
  Receipt Date: 20080616
  Transmission Date: 20081010
  Serious: No
  Sender: FDA-Public Use
  Company Number: US-ASTRAZENECA-2008UW07576

PATIENT
  Age: 16623 Day
  Sex: Female
  Weight: 67.3 kg

DRUGS (5)
  1. SYMBICORT [Suspect]
     Indication: ASTHMA
     Dosage: 160/4.5 UG
     Route: 055
  2. CYMBALTA [Concomitant]
     Route: 048
  3. SINGULAIR [Concomitant]
     Route: 048
  4. FLONASE [Concomitant]
  5. VITAMIN B-12 [Concomitant]

REACTIONS (1)
  - HYPERSENSITIVITY [None]
